FAERS Safety Report 4908994-2 (Version None)
Quarter: 2006Q1

REPORT INFORMATION
  Report Type: 
  Country: None (occurrence: None)
  Receive Date: 20060209
  Receipt Date: 20060123
  Transmission Date: 20060701
  Serious: Yes (Hospitalization)
  Sender: FDA-Public Use
  Company Number: US200511000032

PATIENT
  Age: 78 Year
  Sex: Female

DRUGS (6)
  1. CYMBALTA [Suspect]
     Indication: DEPRESSION
     Dosage: SEE IMAGE
     Dates: start: 20040901
  2. . [Concomitant]
  3. ABILIFY [Concomitant]
  4. SYNTHROID [Concomitant]
  5. DILTIAZEM [Concomitant]
  6. MEMANTINE HCL [Concomitant]

REACTIONS (5)
  - LEUKOCYTOSIS [None]
  - PAIN [None]
  - PYELONEPHRITIS [None]
  - URINARY RETENTION [None]
  - URINARY TRACT INFECTION PSEUDOMONAL [None]
